FAERS Safety Report 25734464 (Version 1)
Quarter: 2025Q3

REPORT INFORMATION
  Report Type: Spontaneous
  Country: EU (occurrence: EU)
  Receive Date: 20250828
  Receipt Date: 20250828
  Transmission Date: 20251021
  Serious: Yes (Disabling, Other)
  Sender: BRISTOL-MYERS SQUIBB COMPANY
  Company Number: None

PATIENT
  Age: 65 Year
  Sex: Male
  Weight: 95 kg

DRUGS (8)
  1. ORENCIA [Suspect]
     Active Substance: ABATACEPT
     Indication: Rheumatoid arthritis
     Dosage: 125 MG/ WEEK
     Route: 058
     Dates: start: 20240205, end: 20250512
  2. METHOTREXATE [Suspect]
     Active Substance: METHOTREXATE
     Indication: Rheumatoid arthritis
     Dosage: 20 MG/ WEEK
     Route: 058
     Dates: start: 20240122, end: 20250512
  3. MEDROL [Concomitant]
     Active Substance: METHYLPREDNISOLONE
     Indication: Rheumatoid arthritis
     Dosage: 6 MG/ DAY
     Route: 048
     Dates: start: 20240724
  4. ACIFOL [FOLIC ACID] [Concomitant]
     Indication: Prophylaxis
     Dosage: 5 MG *3 TIMES/ WEEK
     Route: 048
     Dates: start: 20231123, end: 20250512
  5. ALLOPURINOL [Concomitant]
     Active Substance: ALLOPURINOL
     Indication: Gout
     Dosage: 300 MG/ DAY
     Route: 048
     Dates: start: 20221221
  6. ASPIRIN [Concomitant]
     Active Substance: ASPIRIN
     Indication: Ischaemic cardiomyopathy
     Route: 048
     Dates: start: 20220901
  7. ATORVASTATIN CALCIUM [Concomitant]
     Active Substance: ATORVASTATIN CALCIUM
     Indication: Ischaemic cardiomyopathy
     Dosage: 40MG/ DAY
     Route: 048
     Dates: start: 20220901
  8. PANTOPRAZOLE [Concomitant]
     Active Substance: PANTOPRAZOLE
     Indication: Prophylaxis
     Dosage: 20 MG / DAY
     Route: 048
     Dates: start: 20220414

REACTIONS (2)
  - Pulmonary fibrosis [Not Recovered/Not Resolved]
  - Pneumonia [Recovered/Resolved]

NARRATIVE: CASE EVENT DATE: 20250512
